FAERS Safety Report 18993643 (Version 2)
Quarter: 2021Q4

REPORT INFORMATION
  Report Type: Report from Study
  Country: US (occurrence: US)
  Receive Date: 20210310
  Receipt Date: 20211026
  Transmission Date: 20220304
  Serious: Yes (Other)
  Sender: FDA-Public Use
  Company Number: US-TAKEDA-2021TUS013610

PATIENT
  Sex: Female

DRUGS (2)
  1. VON WILLEBRAND FACTOR HUMAN [Suspect]
     Active Substance: VON WILLEBRAND FACTOR HUMAN
     Indication: Von Willebrand^s disease
     Dosage: 5000 INTERNATIONAL UNIT, PRN
     Route: 042
     Dates: start: 20210201
  2. IDELVION [Concomitant]
     Active Substance: COAGULATION FACTOR IX RECOMBINANT HUMAN
     Indication: Factor IX deficiency
     Dosage: UNK
     Route: 042
     Dates: start: 202103

REACTIONS (4)
  - Haemorrhage [Unknown]
  - Contusion [Not Recovered/Not Resolved]
  - Fall [Unknown]
  - Tissue injury [Not Recovered/Not Resolved]
